FAERS Safety Report 16808358 (Version 1)
Quarter: 2019Q3

REPORT INFORMATION
  Report Type: Spontaneous
  Country: US (occurrence: US)
  Receive Date: 20190916
  Receipt Date: 20190916
  Transmission Date: 20191005
  Serious: No
  Sender: FDA-Public Use
  Company Number: US-STRIDES ARCOLAB LIMITED-2019SP004842

PATIENT
  Sex: Male

DRUGS (4)
  1. NAPROXEN. [Suspect]
     Active Substance: NAPROXEN
     Indication: NEUROPSYCHIATRIC SYNDROME
     Dosage: 250 MG, BID
     Route: 065
  2. IBUPROFEN. [Suspect]
     Active Substance: IBUPROFEN
     Indication: NEUROPSYCHIATRIC SYNDROME
     Dosage: UNK
     Route: 065
  3. IBUPROFEN. [Suspect]
     Active Substance: IBUPROFEN
     Indication: ARTHRALGIA
     Dosage: 380 MG, TID
  4. NAPROXEN. [Suspect]
     Active Substance: NAPROXEN
     Indication: ARTHRITIS

REACTIONS (1)
  - Off label use [Unknown]
